FAERS Safety Report 4340349-4 (Version None)
Quarter: 2004Q1

REPORT INFORMATION
  Report Type: 
  Country: None (occurrence: None)
  Receive Date: 20040331
  Receipt Date: 20040319
  Transmission Date: 20041129
  Serious: Yes (Hospitalization)
  Sender: FDA-Public Use
  Company Number: 2004-01162

PATIENT
  Age: 77 Year
  Sex: Male

DRUGS (3)
  1. IMMUCYST - IT (CONNAUGHT)) [Suspect]
     Indication: BLADDER CANCER
     Dosage: 81.0 MG
     Route: 050
     Dates: start: 20040113, end: 20040113
  2. OFLOCET [Concomitant]
  3. PLACEBO OFLOCET [Concomitant]

REACTIONS (2)
  - BLADDER NECK SCLEROSIS [None]
  - HAEMATURIA [None]
